FAERS Safety Report 18559457 (Version 8)
Quarter: 2025Q1

REPORT INFORMATION
  Report Type: Spontaneous
  Country: US (occurrence: US)
  Receive Date: 20201130
  Receipt Date: 20250220
  Transmission Date: 20250409
  Serious: No
  Sender: PFIZER
  Company Number: US-PFIZER INC-2020463493

PATIENT
  Age: 64 Year
  Sex: Female
  Weight: 58.97 kg

DRUGS (1)
  1. METHOTREXATE SODIUM [Suspect]
     Active Substance: METHOTREXATE SODIUM
     Indication: Rheumatoid arthritis

REACTIONS (4)
  - Abdominal discomfort [Unknown]
  - Drug hypersensitivity [Unknown]
  - Pruritus [Unknown]
  - Nausea [Unknown]
